FAERS Safety Report 10314472 (Version 1)
Quarter: 2014Q3

REPORT INFORMATION
  Report Type: Spontaneous
  Country: LU (occurrence: LU)
  Receive Date: 20140718
  Receipt Date: 20140718
  Transmission Date: 20150326
  Serious: Yes (Hospitalization)
  Sender: FDA-Public Use
  Company Number: LU-PFIZER INC-2014200145

PATIENT
  Age: 83 Year
  Sex: Female

DRUGS (3)
  1. SPIRONOLACTONE. [Suspect]
     Active Substance: SPIRONOLACTONE
     Indication: CARDIAC FAILURE
     Dosage: 25 MG, UNK
     Route: 048
     Dates: start: 201403, end: 201405
  2. ELIQUIS [Suspect]
     Active Substance: APIXABAN
     Dosage: 2.5 MG, ONCE A DAY ORALLY
     Route: 048
     Dates: start: 20140404, end: 20140417
  3. LAMICTAL [Suspect]
     Active Substance: LAMOTRIGINE
     Indication: EPILEPSY
     Dosage: 25 MG, 2X/DAY
     Route: 048
     Dates: start: 201403, end: 20140416

REACTIONS (5)
  - Altered state of consciousness [Unknown]
  - Hepatocellular injury [Recovering/Resolving]
  - Blood lactate dehydrogenase increased [Recovering/Resolving]
  - Cholestasis [Recovering/Resolving]
  - Disturbance in attention [Unknown]

NARRATIVE: CASE EVENT DATE: 20140412
